FAERS Safety Report 14652108 (Version 2)
Quarter: 2018Q3

REPORT INFORMATION
  Report Type: Spontaneous
  Country: US (occurrence: US)
  Receive Date: 20180318
  Receipt Date: 20180703
  Transmission Date: 20181010
  Serious: Yes (Hospitalization)
  Sender: FDA-Public Use
  Company Number: US-JNJFOC-20180307871

PATIENT
  Age: 52 Year
  Sex: Male

DRUGS (4)
  1. XARELTO [Suspect]
     Active Substance: RIVAROXABAN
     Indication: PORTAL VEIN THROMBOSIS
     Dosage: IN VARYING DOSES OF 15 MG, 20 MG
     Route: 048
     Dates: start: 20151028, end: 201707
  2. XARELTO [Suspect]
     Active Substance: RIVAROXABAN
     Indication: DEEP VEIN THROMBOSIS
     Dosage: 15 MG/20 MG
     Route: 048
     Dates: end: 201708
  3. XARELTO [Suspect]
     Active Substance: RIVAROXABAN
     Indication: PORTAL VEIN THROMBOSIS
     Dosage: 15 MG/20 MG
     Route: 048
     Dates: end: 201708
  4. XARELTO [Suspect]
     Active Substance: RIVAROXABAN
     Indication: DEEP VEIN THROMBOSIS
     Dosage: IN VARYING DOSES OF 15 MG, 20 MG
     Route: 048
     Dates: start: 20151028, end: 201707

REACTIONS (3)
  - Acute kidney injury [Recovered/Resolved]
  - Renal haemorrhage [Unknown]
  - Haematuria [Recovering/Resolving]

NARRATIVE: CASE EVENT DATE: 201603
